FAERS Safety Report 25081832 (Version 1)
Quarter: 2025Q1

REPORT INFORMATION
  Report Type: Spontaneous
  Country: IT (occurrence: IT)
  Receive Date: 20250317
  Receipt Date: 20250317
  Transmission Date: 20250409
  Serious: Yes (Other)
  Sender: NOVO NORDISK
  Company Number: IT-NOVOPROD-1385069

PATIENT
  Age: 56 Year
  Sex: Female

DRUGS (3)
  1. SAXENDA [Suspect]
     Active Substance: LIRAGLUTIDE
  2. SAXENDA [Suspect]
     Active Substance: LIRAGLUTIDE
     Indication: Weight control
  3. SAXENDA [Suspect]
     Active Substance: LIRAGLUTIDE

REACTIONS (8)
  - Swelling of eyelid [Unknown]
  - Lip swelling [Unknown]
  - Oedema [Unknown]
  - Discomfort [Unknown]
  - Constipation [Unknown]
  - Urticaria [Recovered/Resolved]
  - Nausea [Unknown]
  - Off label use [Unknown]
